FAERS Safety Report 9406399 (Version 1)
Quarter: 2013Q3

REPORT INFORMATION
  Report Type: Spontaneous
  Country: US (occurrence: US)
  Receive Date: 20130718
  Receipt Date: 20130718
  Transmission Date: 20140515
  Serious: Yes (Hospitalization, Other)
  Sender: FDA-Public Use
  Company Number: US-AMGEN-USASP2013049386

PATIENT
  Age: 45 Year
  Sex: Female

DRUGS (1)
  1. ENBREL [Suspect]
     Indication: RHEUMATOID ARTHRITIS
     Dosage: UNK UNK, QWK
     Route: 065
     Dates: start: 20050101

REACTIONS (4)
  - Breast cancer [Recovered/Resolved]
  - Implant site cellulitis [Recovered/Resolved]
  - Arthritis [Recovered/Resolved]
  - Injection site pain [Recovered/Resolved]
